FAERS Safety Report 12319043 (Version 5)
Quarter: 2018Q1

REPORT INFORMATION
  Report Type: Spontaneous
  Country: US (occurrence: US)
  Receive Date: 20160429
  Receipt Date: 20180123
  Transmission Date: 20180508
  Serious: Yes (Hospitalization, Other)
  Sender: FDA-Public Use
  Company Number: US-009507513-1604USA016184

PATIENT
  Sex: Female
  Weight: 52.15 kg

DRUGS (1)
  1. NUVARING [Suspect]
     Active Substance: ETHINYL ESTRADIOL\ETONOGESTREL
     Indication: CONTRACEPTION
     Dosage: 0.12-0.015MG
     Route: 067
     Dates: start: 201212, end: 20140427

REACTIONS (26)
  - Fear [Unknown]
  - Pulmonary embolism [Recovered/Resolved]
  - Giardiasis [Unknown]
  - Chest pain [Unknown]
  - Stress [Unknown]
  - Upper respiratory tract infection [Unknown]
  - Chest pain [Unknown]
  - Pulmonary embolism [Recovered/Resolved]
  - Dyspepsia [Not Recovered/Not Resolved]
  - Breast mass [Unknown]
  - Palpitations [Unknown]
  - Depression [Unknown]
  - Hypoaesthesia [Unknown]
  - Pain [Unknown]
  - Alcoholism [Unknown]
  - Hypersensitivity [Unknown]
  - Eczema [Unknown]
  - Dyspnoea [Unknown]
  - Menorrhagia [Unknown]
  - Giardiasis [Unknown]
  - Atypical pneumonia [Recovered/Resolved]
  - Anaemia [Unknown]
  - Anaemia [Unknown]
  - Syncope [Unknown]
  - Breast pain [Unknown]
  - Abdominal pain [Unknown]

NARRATIVE: CASE EVENT DATE: 2014
